FAERS Safety Report 5482343-6 (Version None)
Quarter: 2007Q4

REPORT INFORMATION
  Report Type: 
  Country: None (occurrence: None)
  Receive Date: 20071011
  Receipt Date: 20071001
  Transmission Date: 20080405
  Serious: Yes (Hospitalization)
  Sender: FDA-Public Use
  Company Number: US-GENENTECH-246935

PATIENT
  Sex: Male
  Weight: 92.517 kg

DRUGS (21)
  1. BEVACIZUMAB [Suspect]
     Indication: GLIOBLASTOMA MULTIFORME
     Dosage: 1173 MG, Q2W
     Route: 042
     Dates: start: 20061215, end: 20070619
  2. IRINOTECAN HCL [Suspect]
     Indication: GLIOBLASTOMA MULTIFORME
     Dosage: 164 MG, Q2W
     Route: 042
     Dates: start: 20061215
  3. DECADRON [Concomitant]
     Indication: BRAIN OEDEMA
  4. DECADRON [Concomitant]
     Indication: PROPHYLAXIS
  5. KEPPRA [Concomitant]
     Indication: CONVULSION
     Dates: start: 20060407
  6. LOVENOX [Concomitant]
     Indication: DEEP VEIN THROMBOSIS
     Dates: start: 20070112
  7. SENOKOT [Concomitant]
     Indication: DRUG USE FOR UNKNOWN INDICATION
  8. LOPRESSOR [Concomitant]
     Indication: HYPERTENSION
     Dates: start: 20060426
  9. NORVASC [Concomitant]
     Indication: HYPERTENSION
     Dates: start: 20060515, end: 20070607
  10. METFORMIN HCL [Concomitant]
     Indication: DIABETES MELLITUS
     Dates: start: 20061106, end: 20070515
  11. BACTRIM [Concomitant]
     Indication: INFECTION
     Dates: start: 20060601, end: 20070619
  12. HYDROCHLOROTHIAZIDE [Concomitant]
     Indication: HYPERTENSION
     Dates: start: 20061106, end: 20070602
  13. LANTUS [Concomitant]
     Indication: DIABETES MELLITUS
     Dates: start: 20061106, end: 20070501
  14. ATIVAN [Concomitant]
     Indication: ANXIETY
     Dosage: UNK, PRN
     Dates: start: 20060404
  15. NEUPOGEN [Concomitant]
     Indication: NEUTROPENIA
     Dates: start: 20070502
  16. ARANESP [Concomitant]
     Indication: ANAEMIA
     Dates: start: 20070531
  17. ALLOPURINOL [Concomitant]
     Indication: BLOOD URIC ACID INCREASED
     Dates: start: 20070515, end: 20070607
  18. ALOXI [Concomitant]
     Indication: PREMEDICATION
     Dates: start: 20070313, end: 20070529
  19. ATROPINE [Concomitant]
     Indication: PREMEDICATION
     Dates: start: 20070313, end: 20070329
  20. K-DUR 10 [Concomitant]
     Indication: HYPOKALAEMIA
     Dates: start: 20070328
  21. HEPARIN [Concomitant]
     Indication: DRUG USE FOR UNKNOWN INDICATION
     Dates: start: 20070328

REACTIONS (3)
  - CEREBRAL HAEMORRHAGE [None]
  - HAEMORRHAGE [None]
  - SUBARACHNOID HAEMORRHAGE [None]
